FAERS Safety Report 4497705-3 (Version None)
Quarter: 2004Q4

REPORT INFORMATION
  Report Type: 
  Country: None (occurrence: None)
  Receive Date: 20041104
  Receipt Date: 20041020
  Transmission Date: 20050328
  Serious: Yes (Hospitalization)
  Sender: FDA-Public Use
  Company Number: US-JNJFOC-20041006348

PATIENT
  Age: 60 Year
  Sex: Female

DRUGS (1)
  1. REMICADE [Suspect]
     Indication: RHEUMATOID ARTHRITIS
     Route: 042

REACTIONS (6)
  - AMNESIA [None]
  - COMA [None]
  - DELIRIUM [None]
  - ENCEPHALOPATHY [None]
  - GAIT DISTURBANCE [None]
  - MENTAL STATUS CHANGES [None]
